FAERS Safety Report 5473234-5 (Version None)
Quarter: 2007Q3

REPORT INFORMATION
  Report Type: 
  Country: None (occurrence: None)
  Receive Date: 20070927
  Receipt Date: 20070918
  Transmission Date: 20080115
  Serious: Yes (Hospitalization)
  Sender: FDA-Public Use
  Company Number: 2007VX002160

PATIENT
  Age: 54 Year
  Sex: Male

DRUGS (1)
  1. PERMAX [Suspect]
     Indication: PARKINSON'S DISEASE
     Dosage: 4 MG; QD; PO
     Route: 048
     Dates: start: 19950101, end: 20070501

REACTIONS (2)
  - RETROPERITONEAL FIBROSIS [None]
  - URETHRAL STENOSIS [None]
